FAERS Safety Report 24813969 (Version 1)
Quarter: 2025Q1

REPORT INFORMATION
  Report Type: Spontaneous
  Country: DE (occurrence: DE)
  Receive Date: 20250107
  Receipt Date: 20250107
  Transmission Date: 20250408
  Serious: Yes (Other)
  Sender: AUROBINDO
  Company Number: DE-Desitin-2024-02750

PATIENT
  Age: 14 Year
  Sex: Male
  Weight: 94 kg

DRUGS (5)
  1. LEVETIRACETAM [Suspect]
     Active Substance: LEVETIRACETAM
     Indication: Product used for unknown indication
     Route: 065
  2. VALPROIC ACID [Suspect]
     Active Substance: VALPROIC ACID
     Indication: Epilepsy
     Route: 065
     Dates: start: 2016
  3. VALPROIC ACID [Suspect]
     Active Substance: VALPROIC ACID
     Dosage: 600 MILLIGRAM, TWO TIMES A DAY
     Route: 048
     Dates: start: 20200808
  4. LAMOTRIGINE [Concomitant]
     Active Substance: LAMOTRIGINE
     Indication: Epilepsy
     Dosage: 100 MILLIGRAM, TWO TIMES A DAY (LAMOTRIGINE 1A)
     Route: 048
     Dates: start: 20200808
  5. FYCOMPA [Concomitant]
     Active Substance: PERAMPANEL
     Indication: Epilepsy
     Dosage: 6 MILLIGRAM, ONCE A DAY (IN THE EVENING)
     Route: 065
     Dates: start: 2019

REACTIONS (7)
  - Seizure [Unknown]
  - Drug ineffective [Unknown]
  - Prescribed overdose [Recovered/Resolved]
  - Weight increased [Unknown]
  - Skin fissures [Unknown]
  - Aggression [Recovered/Resolved]
  - Underdose [Unknown]
